FAERS Safety Report 7732689-3 (Version None)
Quarter: 2011Q3

REPORT INFORMATION
  Report Type: 
  Country: None (occurrence: None)
  Receive Date: 20110907
  Receipt Date: 20110829
  Transmission Date: 20111222
  Serious: Yes (Hospitalization, Other)
  Sender: FDA-Public Use
  Company Number: US-BIOGENIDEC-2009BI027581

PATIENT
  Age: 45 Year
  Sex: Female
  Weight: 58 kg

DRUGS (5)
  1. VICODIN [Concomitant]
     Indication: BACK PAIN
     Route: 048
  2. CONCERTA [Concomitant]
     Indication: FATIGUE
     Route: 048
  3. PROVIGIL [Concomitant]
     Indication: FATIGUE
     Route: 048
  4. AVONEX [Suspect]
     Route: 030
     Dates: start: 20030801
  5. AVONEX [Suspect]
     Indication: MULTIPLE SCLEROSIS
     Route: 030
     Dates: start: 20000501, end: 20030801

REACTIONS (22)
  - ELECTROENCEPHALOGRAM ABNORMAL [None]
  - MULTIPLE SCLEROSIS [None]
  - DEPRESSION [None]
  - MEMORY IMPAIRMENT [None]
  - BRADYPHRENIA [None]
  - ARTHRITIS [None]
  - MUSCULAR WEAKNESS [None]
  - ARTHRALGIA [None]
  - VIITH NERVE PARALYSIS [None]
  - HYPOAESTHESIA [None]
  - FEELING ABNORMAL [None]
  - CEREBROVASCULAR ACCIDENT [None]
  - FIBROMYALGIA [None]
  - DROOLING [None]
  - APHASIA [None]
  - FALL [None]
  - PLANTAR FASCIITIS [None]
  - PARAESTHESIA [None]
  - SPEECH DISORDER [None]
  - DYSARTHRIA [None]
  - GENERAL SYMPTOM [None]
  - PAIN IN EXTREMITY [None]
